APPROVED DRUG PRODUCT: METHAZOLAMIDE
Active Ingredient: METHAZOLAMIDE
Strength: 50MG
Dosage Form/Route: TABLET;ORAL
Application: A040102 | Product #002
Applicant: ATHEM HOLDINGS LLC
Approved: Aug 28, 1996 | RLD: No | RS: No | Type: DISCN